FAERS Safety Report 24423244 (Version 1)
Quarter: 2024Q4

REPORT INFORMATION
  Report Type: Spontaneous
  Country: CA (occurrence: CA)
  Receive Date: 20241010
  Receipt Date: 20241010
  Transmission Date: 20250115
  Serious: Yes (Other)
  Sender: SANOFI AVENTIS
  Company Number: CA-SA-2024SA289353

PATIENT
  Age: 63 Year
  Sex: Male

DRUGS (6)
  1. DUPILUMAB [Suspect]
     Active Substance: DUPILUMAB
     Indication: Hand dermatitis
     Dosage: UNK
  2. CLOBETASOL [Concomitant]
     Active Substance: CLOBETASOL
     Indication: Hand dermatitis
     Dosage: UNK UNK, BID
  3. CRISABOROLE [Concomitant]
     Active Substance: CRISABOROLE
     Indication: Hand dermatitis
     Dosage: UNK UNK, BID
  4. TACROLIMUS [Concomitant]
     Active Substance: TACROLIMUS
     Indication: Hand dermatitis
     Dosage: UNK UNK, BID
  5. METHOTREXATE [Concomitant]
     Active Substance: METHOTREXATE
     Indication: Hand dermatitis
     Dosage: UNK UNK, QW (SYSTEMIC)
  6. DESOXIMETASONE [Concomitant]
     Active Substance: DESOXIMETASONE
     Indication: Hand dermatitis
     Dosage: UNK UNK, BID
     Route: 061

REACTIONS (11)
  - Subacute cutaneous lupus erythematosus [Recovering/Resolving]
  - Oral pain [Recovering/Resolving]
  - Rash [Recovering/Resolving]
  - Urticaria [Recovering/Resolving]
  - Papule [Recovering/Resolving]
  - Skin plaque [Recovering/Resolving]
  - Dermatitis [Recovering/Resolving]
  - Superficial inflammatory dermatosis [Recovering/Resolving]
  - Dry mouth [Recovering/Resolving]
  - Tongue discomfort [Recovering/Resolving]
  - Off label use [Recovering/Resolving]
